FAERS Safety Report 5268949-8 (Version None)
Quarter: 2007Q1

REPORT INFORMATION
  Report Type: 
  Country: None (occurrence: None)
  Receive Date: 20061214
  Receipt Date: 20060705
  Transmission Date: 20070707
  Serious: Yes (Hospitalization)
  Sender: FDA-Public Use
  Company Number: 2006078607

PATIENT
  Age: 33 Year
  Sex: Female
  Weight: 54.5 kg

DRUGS (4)
  1. XANAX [Suspect]
     Indication: ANXIETY DISORDER
     Dosage: 1.5 MG (0.5 MG, 3 IN 1 D), ORAL
     Route: 048
  2. PROMETRIUM [Suspect]
     Indication: AMENORRHOEA
     Dosage: 400 MG (400 MG, 1 IN 1 D), ORAL
     Route: 048
     Dates: start: 20020101, end: 20060602
  3. PERCOCET [Suspect]
     Indication: PAIN
     Dosage: 625 MG (325 MG, 2 IN 1 D), ORAL
     Route: 048
  4. DILAUDID [Suspect]
     Indication: PAIN

REACTIONS (2)
  - DIZZINESS [None]
  - LOSS OF CONSCIOUSNESS [None]
